FAERS Safety Report 14880393 (Version 2)
Quarter: 2018Q4

REPORT INFORMATION
  Report Type: Report from Study
  Country: US (occurrence: US)
  Receive Date: 20180511
  Receipt Date: 20181010
  Transmission Date: 20190204
  Serious: Yes (Hospitalization, Other)
  Sender: FDA-Public Use
  Company Number: US-SA-2017SA237828

PATIENT
  Age: 42 Year
  Sex: Female

DRUGS (3)
  1. LEMTRADA [Suspect]
     Active Substance: ALEMTUZUMAB
     Dosage: 12 MG,QD
     Route: 041
     Dates: start: 20160822, end: 20160826
  2. LEMTRADA [Suspect]
     Active Substance: ALEMTUZUMAB
     Indication: MULTIPLE SCLEROSIS
     Dosage: 12 MG,QD
     Route: 041
     Dates: start: 20171030, end: 20171101
  3. DENOSUMAB [Concomitant]
     Active Substance: DENOSUMAB
     Dosage: 60 MG,UNK
     Route: 058

REACTIONS (14)
  - Haemoglobin decreased [Recovered/Resolved]
  - Drug level increased [Recovered/Resolved]
  - Heart rate increased [Not Recovered/Not Resolved]
  - Autoimmune haemolytic anaemia [Not Recovered/Not Resolved]
  - Dizziness [Recovered/Resolved]
  - Syncope [Not Recovered/Not Resolved]
  - Urinary tract infection [Recovered/Resolved]
  - Decubitus ulcer [Not Recovered/Not Resolved]
  - Loss of consciousness [Recovered/Resolved]
  - Speech disorder [Not Recovered/Not Resolved]
  - Haematocrit decreased [Recovered/Resolved]
  - Epilepsy [Recovered/Resolved]
  - Unresponsive to stimuli [Not Recovered/Not Resolved]
  - Memory impairment [Not Recovered/Not Resolved]

NARRATIVE: CASE EVENT DATE: 20171119
